FAERS Safety Report 6369548-7 (Version None)
Quarter: 2009Q3

REPORT INFORMATION
  Report Type: 
  Country: None (occurrence: None)
  Receive Date: 20090923
  Receipt Date: 20090915
  Transmission Date: 20100115
  Serious: Yes (Hospitalization)
  Sender: FDA-Public Use
  Company Number: CA-JNJFOC-20090904616

PATIENT
  Age: 40 Year
  Sex: Female

DRUGS (4)
  1. ORTHO EVRA [Suspect]
     Indication: DRUG USE FOR UNKNOWN INDICATION
     Route: 062
  2. CIPROFLAXACIN [Interacting]
     Indication: CYSTITIS
     Route: 065
  3. MACROBID [Interacting]
     Indication: CYSTITIS
     Route: 065
  4. PHENAZO [Concomitant]
     Indication: CYSTITIS
     Route: 065

REACTIONS (4)
  - CYSTITIS [None]
  - DRUG INTERACTION [None]
  - MENSTRUATION IRREGULAR [None]
  - METRORRHAGIA [None]
